FAERS Safety Report 22604318 (Version 2)
Quarter: 2024Q1

REPORT INFORMATION
  Report Type: Report from Study
  Country: CA (occurrence: CA)
  Receive Date: 20230615
  Receipt Date: 20240228
  Transmission Date: 20240410
  Serious: Yes (Hospitalization)
  Sender: FDA-Public Use
  Company Number: CA-GLAXOSMITHKLINE-CA2023AMR069261

PATIENT

DRUGS (1)
  1. BELIMUMAB [Suspect]
     Active Substance: BELIMUMAB
     Indication: Systemic lupus erythematosus
     Dosage: 400 MG/KG, Q4W
     Route: 042
     Dates: start: 20210712

REACTIONS (4)
  - Bronchitis [Recovered/Resolved]
  - Dyspnoea [Unknown]
  - Cough [Unknown]
  - Inappropriate schedule of product administration [Unknown]
